FAERS Safety Report 23514428 (Version 2)
Quarter: 2024Q2

REPORT INFORMATION
  Report Type: Spontaneous
  Country: JP (occurrence: JP)
  Receive Date: 20240212
  Receipt Date: 20240415
  Transmission Date: 20240716
  Serious: Yes (Life-Threatening)
  Sender: FDA-Public Use
  Company Number: JP-OTSUKA-2024_003082

PATIENT

DRUGS (2)
  1. ICLUSIG [Suspect]
     Active Substance: PONATINIB
     Indication: Product used for unknown indication
     Dosage: UNK
     Route: 065
  2. ICLUSIG [Suspect]
     Active Substance: PONATINIB
     Dosage: UNK
     Route: 065

REACTIONS (1)
  - Full blood count abnormal [Unknown]
